FAERS Safety Report 9704137 (Version 1)
Quarter: 2013Q4

REPORT INFORMATION
  Report Type: Spontaneous
  Country: US (occurrence: US)
  Receive Date: 20131122
  Receipt Date: 20131122
  Transmission Date: 20140711
  Serious: No
  Sender: FDA-Public Use
  Company Number: US-GLAXOSMITHKLINE-A1023854A

PATIENT
  Age: 53 Year
  Sex: Female

DRUGS (2)
  1. WELLBUTRIN SR [Suspect]
     Indication: FIBROMYALGIA
     Dates: start: 20130511, end: 20130512
  2. NO CONCURRENT MEDICATION [Concomitant]

REACTIONS (3)
  - Affect lability [Recovering/Resolving]
  - Crying [Unknown]
  - Agitation [Unknown]
